FAERS Safety Report 8743926 (Version 3)
Quarter: 2012Q4

REPORT INFORMATION
  Report Type: Spontaneous
  Country: US (occurrence: None)
  Receive Date: 20120802
  Receipt Date: 20120925
  Transmission Date: 20130627
  Serious: Yes (Hospitalization)
  Sender: FDA-Public Use
  Company Number: 2012032952

PATIENT
  Sex: Female
  Weight: 88 kg

DRUGS (14)
  1. HIZENTRA [Suspect]
     Indication: HYPOGAMMAGLOBULINAEMIA
     Route: 058
     Dates: start: 2012
  2. HIZENTRA [Suspect]
     Indication: HYPOGAMMAGLOBULINAEMIA
     Dosage: (70 ml; multiple sites over 1-2 hours)
     Route: 058
     Dates: start: 20120726
  3. HIZENTRA [Suspect]
     Indication: HYPOGAMMAGLOBULINAEMIA
     Dosage: (2 gm 10 ml vial; 70 ml in multiple sites over 1-2 hours)
     Route: 058
     Dates: start: 20120911, end: 20120911
  4. HIZENTRA [Suspect]
     Indication: HYPOGAMMAGLOBULINAEMIA
     Dosage: (4 gm 20 ml vial; 70 ml in multiple sites over 1-2 hours)
     Route: 058
     Dates: start: 20120911, end: 20120911
  5. EXCEDRIN MIGRAINE (THOMAPYRIN N) [Concomitant]
  6. SERTRALINE HYDROCHLORIDE [Concomitant]
  7. ALBUTEROL [Concomitant]
  8. ACETAMINOPHEN [Concomitant]
  9. LUNESTA [Concomitant]
  10. PRILOSEC [Concomitant]
  11. ZIAC (GALENIC /BISOPROLOL/HYDROCHLOROTHIAZIDE/) [Concomitant]
  12. DIPHENHYDRAMINE HYDROCHLORIDE [Concomitant]
  13. LIDOCAINE/PRILOCAINE (EMLA /00675501/) [Concomitant]
  14. NAPRELAN (NAPROXEN SODIUM) [Concomitant]

REACTIONS (4)
  - Anaemia [None]
  - Fatigue [None]
  - Nausea [None]
  - Diarrhoea [None]
